FAERS Safety Report 15151388 (Version 2)
Quarter: 2018Q3

REPORT INFORMATION
  Report Type: Report from Study
  Country: US (occurrence: US)
  Receive Date: 20180716
  Receipt Date: 20180906
  Transmission Date: 20181010
  Serious: Yes (Death, Hospitalization)
  Sender: FDA-Public Use
  Company Number: US-ACTELION-A-NJ2018-173613

PATIENT
  Age: 73 Year
  Sex: Male

DRUGS (2)
  1. OPSUMIT [Suspect]
     Active Substance: MACITENTAN
     Indication: RIGHT VENTRICULAR FAILURE
  2. OPSUMIT [Suspect]
     Active Substance: MACITENTAN
     Indication: HYPERTENSIVE HEART DISEASE
     Dosage: 10 MG, QD
     Route: 048
     Dates: start: 201805, end: 20180825

REACTIONS (3)
  - Dyspnoea [Recovering/Resolving]
  - Hospitalisation [Unknown]
  - Disease progression [Fatal]

NARRATIVE: CASE EVENT DATE: 201805
